FAERS Safety Report 5499488-7 (Version None)
Quarter: 2007Q4

REPORT INFORMATION
  Report Type: 
  Country: None (occurrence: None)
  Receive Date: 20071026
  Receipt Date: 20071016
  Transmission Date: 20080405
  Serious: Yes (Other)
  Sender: FDA-Public Use
  Company Number: US-ROCHE-506255

PATIENT
  Age: 50 Year
  Sex: Female

DRUGS (4)
  1. PEG-INTERFERON A-2A (RO 25-8310) [Suspect]
     Dosage: REPORTED AS PEGASYS THERAPY.
     Route: 065
     Dates: start: 20070321
  2. RIBAVIRIN [Suspect]
     Dosage: REPORTED DOSE 800 MG PER DAY OF ^COPEGUS^
     Route: 065
     Dates: start: 20070321
  3. CYMBALTA [Concomitant]
  4. ELAVIL [Concomitant]

REACTIONS (16)
  - ABDOMINAL PAIN UPPER [None]
  - ASTHENIA [None]
  - BACK PAIN [None]
  - DYSPNOEA [None]
  - DYSURIA [None]
  - FACIAL PAIN [None]
  - GINGIVAL PAIN [None]
  - LYMPHADENOPATHY [None]
  - NAUSEA [None]
  - OROPHARYNGEAL SPASM [None]
  - SYSTEMIC LUPUS ERYTHEMATOSUS [None]
  - THROAT IRRITATION [None]
  - THROAT TIGHTNESS [None]
  - TREMOR [None]
  - VAGINAL HAEMORRHAGE [None]
  - WHITE BLOOD CELL COUNT INCREASED [None]
